FAERS Safety Report 14533736 (Version 1)
Quarter: 2018Q1

REPORT INFORMATION
  Report Type: Spontaneous
  Country: US (occurrence: US)
  Receive Date: 20180215
  Receipt Date: 20180215
  Transmission Date: 20180509
  Serious: Yes (Hospitalization)
  Sender: FDA-Public Use
  Company Number: US-ROCHE-2073191

PATIENT
  Age: 84 Year
  Sex: Male

DRUGS (1)
  1. ESBRIET [Suspect]
     Active Substance: PIRFENIDONE
     Indication: PULMONARY ARTERIAL HYPERTENSION
     Dosage: ONGOING
     Route: 048
     Dates: start: 20170227

REACTIONS (3)
  - Intentional product use issue [Unknown]
  - Cholecystitis infective [Unknown]
  - Off label use [Unknown]

NARRATIVE: CASE EVENT DATE: 20171225
